FAERS Safety Report 9650478 (Version 7)
Quarter: 2015Q2

REPORT INFORMATION
  Report Type: Report from Study
  Country: CA (occurrence: CA)
  Receive Date: 20131029
  Receipt Date: 20150408
  Transmission Date: 20150821
  Serious: Yes (Other)
  Sender: FDA-Public Use
  Company Number: CA-ROCHE-1172626

PATIENT
  Age: 67 Year
  Sex: Female
  Weight: 61 kg

DRUGS (13)
  1. ACTEMRA [Suspect]
     Active Substance: TOCILIZUMAB
     Route: 042
     Dates: start: 20131119
  2. GLYBURIDE. [Concomitant]
     Active Substance: GLYBURIDE
  3. ASA [Concomitant]
     Active Substance: ASPIRIN
  4. RABEPRAZOLE [Concomitant]
     Active Substance: RABEPRAZOLE
  5. ACTEMRA [Suspect]
     Active Substance: TOCILIZUMAB
     Indication: RHEUMATOID ARTHRITIS
     Route: 042
     Dates: start: 20121120
  6. FOLIC ACID. [Concomitant]
     Active Substance: FOLIC ACID
  7. PREDNISONE. [Concomitant]
     Active Substance: PREDNISONE
     Route: 065
  8. ACTEMRA [Suspect]
     Active Substance: TOCILIZUMAB
     Route: 042
     Dates: start: 20121218
  9. ACTEMRA [Suspect]
     Active Substance: TOCILIZUMAB
     Route: 042
     Dates: start: 20131022
  10. ARAVA [Concomitant]
     Active Substance: LEFLUNOMIDE
  11. ACTONEL [Concomitant]
     Active Substance: RISEDRONATE SODIUM
  12. IBUPROFEN. [Concomitant]
     Active Substance: IBUPROFEN
  13. ACTEMRA [Suspect]
     Active Substance: TOCILIZUMAB
     Route: 042
     Dates: start: 20141204, end: 20150312

REACTIONS (12)
  - Asthma [Recovering/Resolving]
  - Musculoskeletal stiffness [Not Recovered/Not Resolved]
  - Blood pressure increased [Recovering/Resolving]
  - Infusion related reaction [Recovered/Resolved]
  - Laryngitis [Recovered/Resolved]
  - Infusion related reaction [Unknown]
  - Weight decreased [Unknown]
  - Weight increased [Not Recovered/Not Resolved]
  - Incorrect route of drug administration [Unknown]
  - Poor venous access [Unknown]
  - Contusion [Not Recovered/Not Resolved]
  - Urinary tract infection [Not Recovered/Not Resolved]

NARRATIVE: CASE EVENT DATE: 20121218
